FAERS Safety Report 23089989 (Version 1)
Quarter: 2023Q4

REPORT INFORMATION
  Report Type: Spontaneous
  Country: US (occurrence: US)
  Receive Date: 20231020
  Receipt Date: 20231020
  Transmission Date: 20240109
  Serious: Yes (Life-Threatening, Hospitalization, Other)
  Sender: FDA-Public Use
  Company Number: US-PFM-2023-05800

PATIENT
  Age: 45 Year
  Sex: Female

DRUGS (5)
  1. PROPRANOLOL [Suspect]
     Active Substance: PROPRANOLOL HYDROCHLORIDE
     Indication: Bipolar disorder
     Dosage: 20 MG, BID (2/DAY) AS NEEDED/INGESTION
     Route: 048
  2. PROPRANOLOL [Suspect]
     Active Substance: PROPRANOLOL HYDROCHLORIDE
     Indication: Off label use
  3. LITHIUM [Suspect]
     Active Substance: LITHIUM
     Indication: Bipolar disorder
     Dosage: 450 MG, 600 MG QPM/450 MG XR EVERY MORNING/INGESTION
     Route: 048
  4. LITHIUM [Suspect]
     Active Substance: LITHIUM
     Dosage: 600 MG, QPM/450MG XR EVERY MORNING/INGESTION
     Route: 048
  5. IBUPROFEN [Concomitant]
     Active Substance: IBUPROFEN
     Indication: Upper respiratory tract infection
     Dosage: MULTIPLE DOSES OF IBUPROFEN 800 MG
     Route: 048

REACTIONS (7)
  - Toxicity to various agents [Recovered/Resolved]
  - Electrocardiogram PR prolongation [Recovered/Resolved]
  - Encephalopathy [Recovered/Resolved]
  - Bradycardia [Recovered/Resolved]
  - Electrocardiogram QRS complex prolonged [Recovered/Resolved]
  - Product use in unapproved indication [Unknown]
  - Off label use [Unknown]
